FAERS Safety Report 9456426 (Version 1)
Quarter: 2013Q3

REPORT INFORMATION
  Report Type: Spontaneous
  Country: TR (occurrence: TR)
  Receive Date: 20130813
  Receipt Date: 20130813
  Transmission Date: 20140515
  Serious: Yes (Death)
  Sender: FDA-Public Use
  Company Number: TR-ALEXION PHARMACEUTICALS INC.-A201301840

PATIENT
  Age: 49 Year
  Sex: Male

DRUGS (3)
  1. SOLIRIS 300MG [Suspect]
     Indication: HAEMOLYTIC URAEMIC SYNDROME
     Dosage: 900 MG, QW
     Route: 042
     Dates: start: 20130729, end: 20130729
  2. RITUXIMAB [Concomitant]
     Indication: THROMBOTIC MICROANGIOPATHY
     Dosage: 100 MG, UNK X 4 WEEKS
     Route: 042
  3. VINCRISTINE [Concomitant]
     Indication: IMMUNE THROMBOCYTOPENIC PURPURA
     Dosage: 1 MG, UNK
     Route: 042

REACTIONS (1)
  - Pulmonary oedema [Fatal]
